FAERS Safety Report 7679387-2 (Version None)
Quarter: 2011Q3

REPORT INFORMATION
  Report Type: 
  Country: None (occurrence: None)
  Receive Date: 20110812
  Receipt Date: 20110804
  Transmission Date: 20111222
  Serious: Yes (Hospitalization)
  Sender: FDA-Public Use
  Company Number: FR-TEVA-295348ISR

PATIENT
  Sex: Male
  Weight: 77 kg

DRUGS (13)
  1. LENALIDOMIDE [Suspect]
     Route: 048
     Dates: start: 20091120
  2. ZOMETA [Concomitant]
     Indication: PROPHYLAXIS
     Route: 042
     Dates: start: 20091120, end: 20101001
  3. ZOLPIDEM [Concomitant]
     Indication: INSOMNIA
     Route: 048
     Dates: start: 20100604, end: 20101001
  4. BICARBONAT [Concomitant]
     Indication: ORAL DISORDER
     Dates: start: 20100702, end: 20101029
  5. DEXAMETHASONE [Suspect]
     Indication: MULTIPLE MYELOMA
     Route: 065
     Dates: start: 20091120, end: 20101029
  6. PREVISCAN [Concomitant]
     Indication: THROMBOSIS PROPHYLAXIS
     Route: 048
     Dates: start: 20080901
  7. LEXOMIL [Concomitant]
     Indication: PRODUCT USED FOR UNKNOWN INDICATION
  8. LENALIDOMIDE [Suspect]
     Indication: MULTIPLE MYELOMA
     Route: 048
     Dates: start: 20101001, end: 20101028
  9. SPIRIVA [Concomitant]
     Indication: BRONCHITIS CHRONIC
     Route: 048
     Dates: start: 19990101
  10. SYMBICORT [Concomitant]
     Indication: BRONCHITIS CHRONIC
     Route: 055
     Dates: start: 19990101
  11. DIGOXIN [Concomitant]
     Indication: ATRIAL FIBRILLATION
     Route: 048
     Dates: start: 20090916
  12. NEXIUM [Concomitant]
     Indication: GASTRITIS
     Route: 048
     Dates: start: 20091120
  13. MAXAIR [Concomitant]
     Indication: BRONCHITIS CHRONIC
     Route: 055
     Dates: start: 19990101

REACTIONS (1)
  - CHRONIC OBSTRUCTIVE PULMONARY DISEASE [None]
